FAERS Safety Report 9995199 (Version 2)
Quarter: 2014Q2

REPORT INFORMATION
  Report Type: Spontaneous
  Country: SE (occurrence: SE)
  Receive Date: 20140311
  Receipt Date: 20140512
  Transmission Date: 20141212
  Serious: Yes (Hospitalization)
  Sender: FDA-Public Use
  Company Number: SE-ROCHE-1363384

PATIENT
  Age: 67 Year
  Sex: Male

DRUGS (6)
  1. XOLAIR [Suspect]
     Indication: ASTHMA
     Route: 058
     Dates: start: 20120117
  2. XOLAIR [Suspect]
     Route: 058
     Dates: start: 20140218, end: 20140218
  3. ATORVASTATIN [Concomitant]
  4. FINASTERIDE [Concomitant]
  5. SERETIDE DISKUS [Concomitant]
  6. WARAN [Concomitant]
     Route: 065
     Dates: start: 20140303

REACTIONS (2)
  - Transient ischaemic attack [Recovered/Resolved]
  - Dizziness [Unknown]
